FAERS Safety Report 9638285 (Version 2)
Quarter: 2013Q4

REPORT INFORMATION
  Report Type: Report from Study
  Country: JP (occurrence: JP)
  Receive Date: 20131022
  Receipt Date: 20131022
  Transmission Date: 20140711
  Serious: Yes (Life-Threatening)
  Sender: FDA-Public Use
  Company Number: JP-SA-THYM-1004008

PATIENT
  Age: 6 Year
  Sex: Female
  Weight: 18 kg

DRUGS (12)
  1. THYMOGLOBULINE [Suspect]
     Indication: ACUTE GRAFT VERSUS HOST DISEASE
     Dosage: 0.8 MG, QD OVER 20 MINUTES
     Route: 065
     Dates: start: 20121106, end: 20121106
  2. SOLU-MEDROL [Concomitant]
     Indication: ACUTE MYELOID LEUKAEMIA
     Dates: end: 20121106
  3. PRIMPERAN [Concomitant]
     Indication: ACUTE MYELOID LEUKAEMIA
  4. FOSCAVIR [Concomitant]
     Indication: ACUTE MYELOID LEUKAEMIA
  5. FUNGUARD [Concomitant]
     Indication: ACUTE MYELOID LEUKAEMIA
  6. ORGARAN [Concomitant]
     Indication: ACUTE MYELOID LEUKAEMIA
  7. GASTER [Concomitant]
     Indication: ACUTE MYELOID LEUKAEMIA
  8. FIRSTCIN [Concomitant]
     Indication: ACUTE MYELOID LEUKAEMIA
     Dates: end: 20121106
  9. MEROPEN [Concomitant]
     Indication: ACUTE MYELOID LEUKAEMIA
     Dates: start: 20121106
  10. ANTITHROMBOTIC AGENTS [Concomitant]
     Indication: ACUTE MYELOID LEUKAEMIA
  11. DEXAMETHASONE PALMITATE [Concomitant]
     Indication: ACUTE MYELOID LEUKAEMIA
     Dosage: REPORTED AS LIMETHASON
     Dates: start: 20121106
  12. ATARAX-P [Concomitant]
     Indication: PROPHYLAXIS
     Dates: start: 20121106

REACTIONS (1)
  - Anaphylactic reaction [Recovered/Resolved]
